FAERS Safety Report 7513681-0 (Version None)
Quarter: 2011Q2

REPORT INFORMATION
  Report Type: 
  Country: None (occurrence: None)
  Receive Date: 20110531
  Receipt Date: 20110520
  Transmission Date: 20111010
  Serious: Yes (Hospitalization, Other)
  Sender: FDA-Public Use
  Company Number: US-ASTRAZENECA-2011SE11733

PATIENT
  Age: 902 Month
  Sex: Female
  Weight: 72.6 kg

DRUGS (4)
  1. ASPIRIN [Concomitant]
  2. ARIMIDEX [Suspect]
     Route: 048
  3. EFFEXOR [Concomitant]
  4. NORVASC [Concomitant]

REACTIONS (16)
  - BRADYARRHYTHMIA [None]
  - BACK PAIN [None]
  - ERUCTATION [None]
  - CORONARY ARTERY DISEASE [None]
  - BUNDLE BRANCH BLOCK LEFT [None]
  - PERIPHERAL COLDNESS [None]
  - MYOCARDIAL INFARCTION [None]
  - CHEST PAIN [None]
  - ANXIETY [None]
  - NAUSEA [None]
  - KNEE ARTHROPLASTY [None]
  - DYSPEPSIA [None]
  - DYSPNOEA [None]
  - BLOOD PRESSURE DECREASED [None]
  - ARTHROPATHY [None]
  - HYPERHIDROSIS [None]
